FAERS Safety Report 24566792 (Version 1)
Quarter: 2024Q4

REPORT INFORMATION
  Report Type: Report from Study
  Country: DE (occurrence: DE)
  Receive Date: 20241030
  Receipt Date: 20241030
  Transmission Date: 20250114
  Serious: Yes (Hospitalization)
  Sender: ABBVIE
  Company Number: DE-ABBVIE-5963992

PATIENT
  Age: 66 Year
  Sex: Male

DRUGS (1)
  1. FOSCARBIDOPA\FOSLEVODOPA [Suspect]
     Active Substance: FOSCARBIDOPA\FOSLEVODOPA
     Indication: Parkinson^s disease
     Dosage: CRN: 0.25 ML 7 H; CR: 0.32 ML/H; CRH: 0.34 ML/H; ED: 0.20 ML
     Route: 058

REACTIONS (5)
  - Infusion site inflammation [Unknown]
  - Syncope [Unknown]
  - Freezing phenomenon [Unknown]
  - Nausea [Unknown]
  - Renal pain [Unknown]

NARRATIVE: CASE EVENT DATE: 20241001
